FAERS Safety Report 18863183 (Version 3)
Quarter: 2021Q2

REPORT INFORMATION
  Report Type: Spontaneous
  Country: FR (occurrence: FR)
  Receive Date: 20210209
  Receipt Date: 20210427
  Transmission Date: 20210717
  Serious: Yes (Death)
  Sender: FDA-Public Use
  Company Number: FR-CHEPLA-C20210559

PATIENT
  Age: 42 Year
  Sex: Female
  Weight: 100 kg

DRUGS (22)
  1. NORADRENALINE [Suspect]
     Active Substance: NOREPINEPHRINE
     Dates: end: 20201201
  2. CALCIUM CARBONATE. [Concomitant]
     Active Substance: CALCIUM CARBONATE
     Indication: PRODUCT USED FOR UNKNOWN INDICATION
  3. AMPHOTERICIN B/ TETRACYCLINE [Suspect]
     Active Substance: AMPHOTERICIN B\TETRACYCLINE
     Indication: INFECTION
     Dates: start: 20201120, end: 20201204
  4. BACTRIM [Suspect]
     Active Substance: SULFAMETHOXAZOLE\TRIMETHOPRIM
     Indication: INFECTION
     Dosage: FROM 25/11 WITH AN INCREASE IN DOSE ON 02/12 AND A SWITCH FROM 1200 TO 1600 MG/D)
     Dates: start: 20201202
  5. NICARDIPINE [Suspect]
     Active Substance: NICARDIPINE
     Dates: start: 20201203
  6. PIPERACILLIN/TAZOBACTAM [Suspect]
     Active Substance: PIPERACILLIN SODIUM\TAZOBACTAM SODIUM
     Indication: INFECTION
     Dates: start: 20201225, end: 20201226
  7. LANSOPRAZOLE. [Suspect]
     Active Substance: LANSOPRAZOLE
  8. PROPOFOL. [Suspect]
     Active Substance: PROPOFOL
  9. URAPIDIL [Suspect]
     Active Substance: URAPIDIL
     Dosage: ON 03/12 AND PROBABLY ON 04/12 ACCORDING TO THE OBSERVATIONS BUT NOT FOUND IN THE PRESCRIPTIONS
     Dates: start: 20201203
  10. GANCICLOVIR. [Suspect]
     Active Substance: GANCICLOVIR
     Dates: start: 20201203
  11. MEROPENEM. [Suspect]
     Active Substance: MEROPENEM
     Dates: start: 20201126, end: 20201201
  12. HYDROCORTISONE. [Suspect]
     Active Substance: HYDROCORTISONE
     Dates: start: 20141212, end: 20201204
  13. ACICLOVIR [Suspect]
     Active Substance: ACYCLOVIR
     Indication: PRODUCT USED FOR UNKNOWN INDICATION
     Dates: start: 20201203
  14. HEPARINE SODIQUE WINTHROP [Suspect]
     Active Substance: HEPARIN SODIUM
  15. PROGRAF [Suspect]
     Active Substance: TACROLIMUS
     Indication: RENAL TRANSPLANT
     Dates: start: 20141212, end: 20201204
  16. VORICONAZOLE. [Suspect]
     Active Substance: VORICONAZOLE
     Dates: start: 20201203
  17. SUFENTANIL [Suspect]
     Active Substance: SUFENTANIL
  18. INSULIN [Suspect]
     Active Substance: INSULIN NOS
  19. URANDIL [Suspect]
     Active Substance: CHLORTHALIDONE
     Indication: PRODUCT USED FOR UNKNOWN INDICATION
     Dates: start: 20201203
  20. BACTRIM [Suspect]
     Active Substance: SULFAMETHOXAZOLE\TRIMETHOPRIM
     Indication: INFECTION
     Dosage: FROM 25/11 WITH AN INCREASE IN DOSE ON 02/12 AND A SWITCH FROM 1200 TO 1600 MG/D)
     Dates: start: 20201125
  21. CLONIDINE. [Suspect]
     Active Substance: CLONIDINE
     Dates: start: 20201203
  22. AMIKACIN. [Suspect]
     Active Substance: AMIKACIN
     Dates: start: 20201125

REACTIONS (5)
  - Hyperlactacidaemia [Unknown]
  - Hyperglycaemia [Unknown]
  - Hyperkalaemia [Fatal]
  - Cardiac arrest [Fatal]
  - Hyponatraemia [Unknown]

NARRATIVE: CASE EVENT DATE: 20201204
